FAERS Safety Report 6925201-X (Version None)
Quarter: 2010Q3

REPORT INFORMATION
  Report Type: 
  Country: None (occurrence: None)
  Receive Date: 20100810
  Receipt Date: 20100804
  Transmission Date: 20110219
  Serious: Yes (Death, Hospitalization)
  Sender: FDA-Public Use
  Company Number: WAES 1008USA00453

PATIENT
  Age: 72 Year
  Sex: Female
  Weight: 59.8748 kg

DRUGS (2)
  1. PRINIVIL [Suspect]
     Indication: HYPERTENSION
     Dosage: 10 MG/DAILY/PO; 5 MG
     Route: 048
     Dates: start: 20090507, end: 20090811
  2. BLINDED THERAPY UNK [Suspect]
     Indication: HYPERTENSION
     Dosage: PO
     Route: 048
     Dates: start: 20090604, end: 20090811

REACTIONS (6)
  - BASAL GANGLIA HAEMORRHAGE [None]
  - BLOOD POTASSIUM DECREASED [None]
  - BRAIN OEDEMA [None]
  - CEREBRAL HAEMORRHAGE [None]
  - ENCEPHALOPATHY [None]
  - TREATMENT NONCOMPLIANCE [None]
